FAERS Safety Report 23056985 (Version 1)
Quarter: 2023Q4

REPORT INFORMATION
  Report Type: Report from Study
  Country: CN (occurrence: CN)
  Receive Date: 20231012
  Receipt Date: 20231012
  Transmission Date: 20240110
  Serious: Yes (Hospitalization, Other)
  Sender: FDA-Public Use
  Company Number: CN-TEVA-2023-CN-2935414

PATIENT
  Age: 69 Year
  Sex: Male
  Weight: 90 kg

DRUGS (25)
  1. BENDAMUSTINE [Suspect]
     Active Substance: BENDAMUSTINE
     Indication: Chronic lymphocytic leukaemia
     Dosage: 187.5 MG SINGLE
     Route: 042
     Dates: start: 20230420
  2. BENDAMUSTINE [Suspect]
     Active Substance: BENDAMUSTINE
     Dosage: 103.1 MG SINGLE
     Route: 042
     Dates: start: 20230519
  3. RITUXIMAB [Suspect]
     Active Substance: RITUXIMAB
     Indication: Chronic lymphocytic leukaemia
     Dosage: 781.2 MG SINGLE
     Route: 042
     Dates: start: 20230420
  4. RITUXIMAB [Suspect]
     Active Substance: RITUXIMAB
     Dosage: 1030.8 MG SINGLE
     Route: 042
     Dates: start: 20230519
  5. SODIUM BICARBONATE [Concomitant]
     Active Substance: SODIUM BICARBONATE
     Indication: Hyperuricaemia
     Route: 065
     Dates: start: 20230517, end: 20230526
  6. SODIUM BICARBONATE [Concomitant]
     Active Substance: SODIUM BICARBONATE
     Route: 065
     Dates: start: 20230519, end: 20230525
  7. ONDANSETRON HYDROCHLORIDE [Concomitant]
     Active Substance: ONDANSETRON HYDROCHLORIDE
     Indication: Vomiting
     Route: 065
     Dates: start: 20230519, end: 20230522
  8. DEXTROSE\SODIUM CHLORIDE [Concomitant]
     Active Substance: DEXTROSE\SODIUM CHLORIDE
     Indication: Dehydration
     Route: 065
     Dates: start: 20230519, end: 20230522
  9. POTASSIUM CHLORIDE [Concomitant]
     Active Substance: POTASSIUM CHLORIDE
     Indication: Mineral supplementation
     Route: 065
     Dates: start: 20230519, end: 20230522
  10. TELMISARTAN [Concomitant]
     Active Substance: TELMISARTAN
     Indication: Product used for unknown indication
     Dosage: THERAPY ONGOING
     Route: 065
     Dates: start: 20230429
  11. AMLODIPINE BESYLATE [Concomitant]
     Active Substance: AMLODIPINE BESYLATE
     Indication: Hypertension
     Dosage: THERAPY ONGOING
     Route: 065
     Dates: start: 20230429
  12. SULFAMETHOXAZOLE [Concomitant]
     Active Substance: SULFAMETHOXAZOLE
     Indication: Infection
     Dosage: THERAPY ONGOING
     Route: 065
     Dates: start: 20230517
  13. FAMCICLOVIR [Concomitant]
     Active Substance: FAMCICLOVIR
     Indication: Infection
     Dosage: THERAPY ONGOING
     Route: 065
     Dates: start: 20230517
  14. FEBUXOSTAT [Concomitant]
     Active Substance: FEBUXOSTAT
     Indication: Hyperuricaemia
     Route: 065
     Dates: start: 20230517, end: 20230519
  15. OMEPRAZOLE [Concomitant]
     Active Substance: OMEPRAZOLE
     Indication: Acidosis
     Dosage: THERAPY ONGOING
     Route: 065
     Dates: start: 20230519
  16. PENICILLIN G BENZATHINE [Concomitant]
     Active Substance: PENICILLIN G BENZATHINE
     Indication: Prophylaxis
     Route: 065
     Dates: start: 20230519, end: 20230531
  17. TORSEMIDE [Concomitant]
     Active Substance: TORSEMIDE
     Indication: Polyuria
     Route: 065
     Dates: start: 20230519, end: 20230522
  18. LEVOFLACIN [Concomitant]
     Indication: Infection
     Route: 065
     Dates: start: 20230522, end: 20230526
  19. METHYLPREDNISOLONE [Concomitant]
     Active Substance: METHYLPREDNISOLONE
     Indication: Antiallergic therapy
     Route: 065
     Dates: start: 20230522, end: 20230529
  20. FUROSEMIDE [Concomitant]
     Active Substance: FUROSEMIDE
     Indication: Polyuria
     Route: 065
     Dates: start: 20230523, end: 20230529
  21. LOXOPROFEN [Concomitant]
     Active Substance: LOXOPROFEN
     Indication: Pain
     Route: 065
     Dates: start: 20230517, end: 20230521
  22. PROMETHAZINE [Concomitant]
     Active Substance: PROMETHAZINE HYDROCHLORIDE
     Indication: Antiallergic therapy
     Route: 065
     Dates: start: 20230521, end: 20230521
  23. ANALGESIC [BENZOCAINE;PHENAZONE] [Concomitant]
     Indication: Pain
     Route: 065
     Dates: start: 20230522, end: 20230522
  24. MEROPENEM [Concomitant]
     Active Substance: MEROPENEM
     Indication: Antibiotic therapy
     Route: 065
     Dates: start: 20230526, end: 20230529
  25. CEFACLOR [Concomitant]
     Active Substance: CEFACLOR
     Indication: Antibiotic therapy
     Dosage: THERAPY ONGOING
     Route: 065
     Dates: start: 20230529

REACTIONS (5)
  - COVID-19 [Recovered/Resolved]
  - Interstitial lung disease [Recovered/Resolved]
  - Cardiac failure [Unknown]
  - Pneumonia [Unknown]
  - Pulmonary toxicity [Unknown]

NARRATIVE: CASE EVENT DATE: 20230522
